FAERS Safety Report 8013825-0 (Version None)
Quarter: 2011Q4

REPORT INFORMATION
  Report Type: 
  Country: None (occurrence: None)
  Receive Date: 20111229
  Receipt Date: 20111221
  Transmission Date: 20120403
  Serious: Yes (Hospitalization)
  Sender: FDA-Public Use
  Company Number: PHHY2011FR111536

PATIENT
  Sex: Female

DRUGS (8)
  1. TRANDATE [Concomitant]
     Dosage: UNK UKN, UNK
  2. DESLORATADINE [Concomitant]
     Dosage: UNK UKN, UNK
  3. EXELON [Suspect]
     Dosage: 3 MG, TWICE PER DAY
     Route: 048
     Dates: start: 20111114
  4. ACETAMINOPHEN [Concomitant]
     Dosage: UNK UKN, UNK
  5. EXELON [Suspect]
     Indication: DEMENTIA ALZHEIMER'S TYPE
     Dosage: 4.5 MG , 2 DF, DAILY
     Route: 048
     Dates: start: 20101201, end: 20110501
  6. EXELON [Suspect]
     Dosage: UNK UKN, UNK
     Route: 048
     Dates: start: 20110501
  7. LIPUR [Concomitant]
     Dosage: UNK UKN, UNK
  8. EXELON [Suspect]
     Dosage: 3 MG, QD
     Route: 048

REACTIONS (1)
  - EPILEPSY [None]
